FAERS Safety Report 25223407 (Version 1)
Quarter: 2025Q2

REPORT INFORMATION
  Report Type: Spontaneous
  Country: GB (occurrence: GB)
  Receive Date: 20250422
  Receipt Date: 20250422
  Transmission Date: 20250716
  Serious: Yes (Other)
  Sender: DEXCEL
  Company Number: None

PATIENT
  Age: 25 Year
  Sex: Male
  Weight: 44 kg

DRUGS (5)
  1. OMEPRAZOLE [Suspect]
     Active Substance: OMEPRAZOLE
     Indication: Ill-defined disorder
     Dates: start: 20250411
  2. OMEPRAZOLE [Concomitant]
     Active Substance: OMEPRAZOLE
     Indication: Ill-defined disorder
     Dosage: TAKE ONE DAILY
     Dates: start: 20250401
  3. AZELASTINE [Concomitant]
     Active Substance: AZELASTINE
     Indication: Ill-defined disorder
     Dosage: ONE PUFF TWICE DAILY
     Dates: start: 20250410
  4. OTOMIZE [Concomitant]
     Indication: Ill-defined disorder
     Dosage: ONE SPRAY THREE TIMES A DAY
     Dates: start: 20250410, end: 20250415
  5. ALBUTEROL [Concomitant]
     Active Substance: ALBUTEROL
     Indication: Ill-defined disorder
     Dates: start: 20250410

REACTIONS (1)
  - Wheezing [Recovering/Resolving]

NARRATIVE: CASE EVENT DATE: 20250416
